FAERS Safety Report 5005611-0 (Version None)
Quarter: 2006Q1

REPORT INFORMATION
  Report Type: 
  Country: None (occurrence: None)
  Receive Date: 20060317
  Receipt Date: 20060110
  Transmission Date: 20060701
  Serious: Yes (Hospitalization)
  Sender: FDA-Public Use
  Company Number: US-JNJFOC-20060103940

PATIENT
  Age: 35 Year
  Sex: Female
  Weight: 74.8435 kg

DRUGS (5)
  1. ORTHO EVRA [Suspect]
     Indication: DRUG USE FOR UNKNOWN INDICATION
     Dates: start: 20050201, end: 20050501
  2. PROZAC [Concomitant]
  3. PROVIGIL [Concomitant]
  4. LEVOXYL [Concomitant]
  5. CYMBALTA [Concomitant]

REACTIONS (1)
  - CEREBROVASCULAR ACCIDENT [None]
